FAERS Safety Report 7976418-7 (Version None)
Quarter: 2011Q4

REPORT INFORMATION
  Report Type: 
  Country: None (occurrence: None)
  Receive Date: 20111213
  Receipt Date: 20111020
  Transmission Date: 20120403
  Serious: No
  Sender: FDA-Public Use
  Company Number: US-AMGEN-USASP2011054534

PATIENT
  Sex: Female

DRUGS (14)
  1. DIOVAN [Concomitant]
     Dosage: UNK
  2. CETIRIZINE HCL [Concomitant]
     Dosage: UNK
  3. MELOXICAM [Concomitant]
     Dosage: UNK
  4. FOLIC ACID [Concomitant]
     Dosage: UNK
  5. SIMPONI [Concomitant]
  6. ALPRAZOLAM [Concomitant]
     Dosage: UNK
  7. ACTOS [Concomitant]
     Dosage: UNK
  8. HUMIRA [Concomitant]
  9. NEURONTIN [Concomitant]
  10. METHOTREXATE [Concomitant]
     Dosage: UNK
  11. ENBREL [Suspect]
     Indication: PSORIATIC ARTHROPATHY
     Dosage: 50 MG, QWK
  12. ULTRAM [Concomitant]
     Dosage: UNK
  13. OXYCODONE HCL [Concomitant]
     Dosage: UNK
  14. LASIX [Concomitant]
     Dosage: UNK

REACTIONS (2)
  - POOR QUALITY SLEEP [None]
  - FATIGUE [None]
